FAERS Safety Report 9184596 (Version 3)
Quarter: 2013Q3

REPORT INFORMATION
  Report Type: Spontaneous
  Country: DK (occurrence: DK)
  Receive Date: 20130324
  Receipt Date: 20130917
  Transmission Date: 20140515
  Serious: Yes (Hospitalization, Disabling, Other)
  Sender: FDA-Public Use
  Company Number: DK-009507513-1303DNK007050

PATIENT
  Age: 34 Year
  Sex: Female

DRUGS (1)
  1. MARVELON [Suspect]
     Indication: CONTRACEPTION
     Dosage: UNK
     Route: 048
     Dates: start: 201101, end: 20110329

REACTIONS (13)
  - Aphasia [Not Recovered/Not Resolved]
  - Blood potassium decreased [Unknown]
  - Gastric infection [Unknown]
  - Syncope [Recovered/Resolved]
  - Cerebral infarction [Recovered/Resolved with Sequelae]
  - Thrombosis [Unknown]
  - Cerebral haemorrhage [Unknown]
  - Sensory disturbance [Unknown]
  - Facial paresis [Unknown]
  - Cerebral artery embolism [Recovered/Resolved with Sequelae]
  - Disturbance in attention [Not Recovered/Not Resolved]
  - Memory impairment [Not Recovered/Not Resolved]
  - Cognitive disorder [Not Recovered/Not Resolved]
